FAERS Safety Report 6635224-6 (Version None)
Quarter: 2010Q1

REPORT INFORMATION
  Report Type: 
  Country: None (occurrence: None)
  Receive Date: 20100315
  Receipt Date: 20100305
  Transmission Date: 20100710
  Serious: Yes (Other)
  Sender: FDA-Public Use
  Company Number: GXKR2010GB02669

PATIENT
  Age: 65 Year
  Sex: Female

DRUGS (4)
  1. HYDROXYCARBAMIDE (NGX) [Suspect]
     Indication: PLATELET COUNT INCREASED
     Dosage: 500 MG, QD
     Route: 048
     Dates: start: 20100209, end: 20100218
  2. LISINOPRIL [Suspect]
     Indication: HYPERTENSION
     Dosage: 2.5 MG, QD
     Route: 048
     Dates: end: 20100218
  3. ALLOPURINOL [Suspect]
     Indication: BLOOD URIC ACID INCREASED
     Dosage: 300 MG, QD
     Route: 048
     Dates: start: 20100209, end: 20100218
  4. LEVOTHYROXINE SODIUM [Concomitant]
     Route: 065

REACTIONS (5)
  - EYE SWELLING [None]
  - HEAD BANGING [None]
  - MUSCULOSKELETAL STIFFNESS [None]
  - RASH PRURITIC [None]
  - WHEEZING [None]
